FAERS Safety Report 10962698 (Version 1)
Quarter: 2015Q1

REPORT INFORMATION
  Report Type: Report from Study
  Country: IT (occurrence: IT)
  Receive Date: 20150327
  Receipt Date: 20150327
  Transmission Date: 20150721
  Serious: Yes (Hospitalization, Other)
  Sender: FDA-Public Use
  Company Number: PHHY2015IT023069

PATIENT
  Age: 68 Year
  Sex: Male

DRUGS (5)
  1. CERTICAN [Suspect]
     Active Substance: EVEROLIMUS
     Indication: HEART TRANSPLANT
  2. CEFIXORAL [Concomitant]
     Active Substance: CEFIXIME
     Indication: ANTIBIOTIC THERAPY
     Dosage: 400 MG, QD
     Route: 065
     Dates: start: 20140605, end: 20140630
  3. SANDIMMUN NEORAL [Concomitant]
     Active Substance: CYCLOSPORINE
     Indication: PROPHYLAXIS AGAINST TRANSPLANT REJECTION
     Dosage: 50 MG, QD
     Route: 065
     Dates: start: 20140227, end: 20140630
  4. CERTICAN [Suspect]
     Active Substance: EVEROLIMUS
     Indication: PROPHYLAXIS AGAINST TRANSPLANT REJECTION
     Dosage: 150 MG, BID
     Route: 048
     Dates: start: 20140206
  5. DELTACORTENE [Concomitant]
     Active Substance: PREDNISONE
     Indication: PROPHYLAXIS AGAINST TRANSPLANT REJECTION
     Dosage: 1.25 MG, QD
     Route: 065
     Dates: start: 20060605

REACTIONS (5)
  - Blood fibrinogen increased [Unknown]
  - Haemoglobin decreased [Unknown]
  - Cholecystitis acute [Recovered/Resolved]
  - Gamma-glutamyltransferase increased [Unknown]
  - Blood creatinine increased [Unknown]

NARRATIVE: CASE EVENT DATE: 20140605
